FAERS Safety Report 16039038 (Version 4)
Quarter: 2022Q2

REPORT INFORMATION
  Report Type: Spontaneous
  Country: US (occurrence: US)
  Receive Date: 20190306
  Receipt Date: 20220521
  Transmission Date: 20220721
  Serious: Yes (Death)
  Sender: FDA-Public Use
  Company Number: PHEH2019US009817

PATIENT
  Age: 6 Month

DRUGS (1)
  1. KYMRIAH [Suspect]
     Active Substance: TISAGENLECLEUCEL
     Indication: Acute lymphocytic leukaemia refractory
     Dosage: 1 DOSAGE FORM, ONCE/SINGLE
     Route: 042
     Dates: start: 20190219

REACTIONS (3)
  - Renal failure [Fatal]
  - Acute lymphocytic leukaemia refractory [Fatal]
  - Malignant neoplasm progression [Fatal]
